FAERS Safety Report 9715749 (Version 1)
Quarter: 2013Q4

REPORT INFORMATION
  Report Type: Report from Study
  Country: US (occurrence: US)
  Receive Date: 20131127
  Receipt Date: 20131127
  Transmission Date: 20140711
  Serious: Yes (Hospitalization)
  Sender: FDA-Public Use
  Company Number: US-BAYER-2013-142183

PATIENT
  Age: 35 Year
  Sex: Male

DRUGS (2)
  1. BETASERON [Suspect]
     Indication: MULTIPLE SCLEROSIS
     Dosage: 6 MIU, QOD
     Route: 058
     Dates: start: 20121113
  2. AMPYRA [Concomitant]

REACTIONS (10)
  - Tremor [Recovered/Resolved]
  - Vomiting [Recovered/Resolved]
  - Tremor [Recovered/Resolved]
  - Vomiting [Recovered/Resolved]
  - Feeling cold [Recovered/Resolved]
  - Abasia [Recovered/Resolved]
  - Feelings of worthlessness [Recovered/Resolved]
  - Infection [Recovered/Resolved]
  - Musculoskeletal pain [Recovered/Resolved]
  - Injection site injury [Recovered/Resolved]
